FAERS Safety Report 5487892-2 (Version None)
Quarter: 2007Q3

REPORT INFORMATION
  Report Type: 
  Country: None (occurrence: None)
  Receive Date: 20070925
  Receipt Date: 20070723
  Transmission Date: 20080115
  Serious: No
  Sender: FDA-Public Use
  Company Number: 2007US001545

PATIENT
  Age: 57 Year
  Sex: Female
  Weight: 56.7 kg

DRUGS (2)
  1. VESICARE [Suspect]
     Indication: URINARY INCONTINENCE
     Dosage: 5 MG, UID/QD, ORAL
     Route: 048
     Dates: start: 20070101
  2. MELATONIN [Concomitant]

REACTIONS (1)
  - TOOTH DISCOLOURATION [None]
